FAERS Safety Report 14336876 (Version 1)
Quarter: 2017Q4

REPORT INFORMATION
  Report Type: Report from Study
  Country: JP (occurrence: JP)
  Receive Date: 20171229
  Receipt Date: 20171229
  Transmission Date: 20180321
  Serious: Yes (Hospitalization)
  Sender: FDA-Public Use
  Company Number: JP-ASTRAZENECA-2017SF32944

PATIENT
  Age: 28556 Day
  Sex: Male
  Weight: 74 kg

DRUGS (8)
  1. PITAVASTATIN CALCIUM [Concomitant]
     Active Substance: PITAVASTATIN CALCIUM
     Route: 048
  2. VESICARE [Concomitant]
     Active Substance: SOLIFENACIN SUCCINATE
     Route: 048
  3. FORXIGA [Suspect]
     Active Substance: DAPAGLIFLOZIN
     Indication: TYPE 2 DIABETES MELLITUS
     Dosage: IN THE MORNING
     Route: 048
     Dates: start: 20151124
  4. URIEF OD [Concomitant]
     Route: 048
  5. ONGLYZA [Concomitant]
     Active Substance: SAXAGLIPTIN HYDROCHLORIDE
     Indication: TYPE 2 DIABETES MELLITUS
     Route: 048
     Dates: start: 20161025, end: 20170904
  6. METFORMIN HYDROCHLORIDE. [Concomitant]
     Active Substance: METFORMIN HYDROCHLORIDE
     Indication: TYPE 2 DIABETES MELLITUS
     Route: 048
  7. ONGLYZA [Concomitant]
     Active Substance: SAXAGLIPTIN HYDROCHLORIDE
     Indication: TYPE 2 DIABETES MELLITUS
     Route: 048
     Dates: end: 20161024
  8. ONGLYZA [Concomitant]
     Active Substance: SAXAGLIPTIN HYDROCHLORIDE
     Indication: TYPE 2 DIABETES MELLITUS
     Route: 048
     Dates: start: 20170905

REACTIONS (1)
  - Lung neoplasm malignant [Not Recovered/Not Resolved]

NARRATIVE: CASE EVENT DATE: 20170605
